FAERS Safety Report 9061342 (Version 1)
Quarter: 2013Q1

REPORT INFORMATION
  Report Type: Spontaneous
  Country: US (occurrence: US)
  Receive Date: 20130204
  Receipt Date: 20130204
  Transmission Date: 20140127
  Serious: No
  Sender: FDA-Public Use
  Company Number: US-BAYER-2013-010876

PATIENT
  Age: 26 Year
  Sex: Female
  Weight: 88.44 kg

DRUGS (1)
  1. ALEVE CAPLET/TABLET,MIDOL EXTENDED RELIEF CAPLET [Suspect]
     Indication: HEADACHE
     Dosage: 4 DF, OTHER FREQUENCY
     Route: 048
     Dates: start: 20130114, end: 20130114

REACTIONS (2)
  - Drug ineffective [None]
  - Incorrect dose administered [None]
